FAERS Safety Report 16378022 (Version 1)
Quarter: 2019Q2

REPORT INFORMATION
  Report Type: Spontaneous
  Country: ES (occurrence: ES)
  Receive Date: 20190531
  Receipt Date: 20190531
  Transmission Date: 20190711
  Serious: Yes (Hospitalization)
  Sender: FDA-Public Use
  Company Number: ES-PFIZER INC-2019227034

PATIENT
  Age: 71 Year
  Sex: Male

DRUGS (1)
  1. CARDURAN NEO [Suspect]
     Active Substance: DOXAZOSIN MESYLATE
     Indication: ATRIAL FIBRILLATION
     Dosage: 55 MG, WEEKLY(EVERY 7 DAYS)
     Route: 048
     Dates: start: 20080702, end: 20180416

REACTIONS (3)
  - Product use in unapproved indication [Unknown]
  - Off label use [Unknown]
  - Upper gastrointestinal haemorrhage [Recovering/Resolving]

NARRATIVE: CASE EVENT DATE: 20180416
